FAERS Safety Report 9518987 (Version 1)
Quarter: 2013Q3

REPORT INFORMATION
  Report Type: Spontaneous
  Country: US (occurrence: US)
  Receive Date: 20130912
  Receipt Date: 20130912
  Transmission Date: 20140515
  Serious: Yes (Other)
  Sender: FDA-Public Use
  Company Number: US-ELI_LILLY_AND_COMPANY-US201309001985

PATIENT
  Age: 50 Year
  Sex: Female

DRUGS (2)
  1. CYMBALTA [Suspect]
     Indication: DEPRESSION
     Dosage: 60 MG, QD
     Route: 065
  2. CYMBALTA [Suspect]
     Indication: PAIN
     Dosage: 30 MG, QD
     Route: 065

REACTIONS (19)
  - Suicidal behaviour [Unknown]
  - Mental status changes [Unknown]
  - Mood swings [Unknown]
  - Arthralgia [Unknown]
  - Aphasia [Unknown]
  - Crying [Unknown]
  - Decreased appetite [Unknown]
  - Depressed mood [Unknown]
  - Impulsive behaviour [Unknown]
  - Feeling of despair [Unknown]
  - Depressive symptom [Unknown]
  - Confusional state [Unknown]
  - Nightmare [Unknown]
  - Anger [Unknown]
  - Irritability [Unknown]
  - Paraesthesia [Unknown]
  - Headache [Unknown]
  - Dizziness [Unknown]
  - Drug withdrawal syndrome [Unknown]
